FAERS Safety Report 7509717-3 (Version None)
Quarter: 2011Q2

REPORT INFORMATION
  Report Type: 
  Country: None (occurrence: None)
  Receive Date: 20110519
  Receipt Date: 20110505
  Transmission Date: 20111010
  Serious: Yes (Other)
  Sender: FDA-Public Use
  Company Number: 2011MA005463

PATIENT
  Age: 23 Year
  Sex: Male

DRUGS (2)
  1. RISPERIDONE [Suspect]
     Indication: AFFECTIVE DISORDER
     Dosage: 4 MG; PO
     Route: 048
  2. CLONAZEPAM [Suspect]
     Indication: AFFECTIVE DISORDER

REACTIONS (3)
  - CENTRAL NERVOUS SYSTEM LESION [None]
  - ABNORMAL BEHAVIOUR [None]
  - TREMOR [None]
